FAERS Safety Report 7156661-X (Version None)
Quarter: 2010Q4

REPORT INFORMATION
  Report Type: 
  Country: None (occurrence: None)
  Receive Date: 20101214
  Receipt Date: 20091123
  Transmission Date: 20110411
  Serious: No
  Sender: FDA-Public Use
  Company Number: US-ASTRAZENECA-2009SE28174

PATIENT
  Age: 75 Year
  Sex: Female
  Weight: 70.3 kg

DRUGS (4)
  1. CRESTOR [Suspect]
     Route: 048
  2. VERAPAMIL [Concomitant]
     Indication: BLOOD PRESSURE
  3. CELEBREX [Concomitant]
     Indication: ARTHRITIS
  4. SYNTHROID [Concomitant]

REACTIONS (2)
  - ABDOMINAL DISTENSION [None]
  - ABDOMINAL PAIN UPPER [None]
